FAERS Safety Report 5871290-3 (Version None)
Quarter: 2008Q3

REPORT INFORMATION
  Report Type: 
  Country: None (occurrence: None)
  Receive Date: 20080904
  Receipt Date: 20080904
  Transmission Date: 20090109
  Serious: No
  Sender: FDA-Public Use
  Company Number: None

PATIENT
  Age: 75 Year
  Sex: Female
  Weight: 64.4108 kg

DRUGS (1)
  1. CEPHALEXIN [Suspect]
     Indication: SURGERY
     Dosage: 500MG 3 TIMES A DAY
     Dates: start: 20080811, end: 20080818

REACTIONS (2)
  - ANGIOPATHY [None]
  - VISUAL IMPAIRMENT [None]
